FAERS Safety Report 22609686 (Version 1)
Quarter: 2023Q2

REPORT INFORMATION
  Report Type: Spontaneous
  Country: US (occurrence: None)
  Receive Date: 20230615
  Receipt Date: 20230615
  Transmission Date: 20230721
  Serious: Yes (Hospitalization)
  Sender: FDA-Public Use
  Company Number: None

PATIENT
  Age: 41 Year
  Sex: Male

DRUGS (2)
  1. SUCCINYLCHOLINE [Suspect]
     Active Substance: SUCCINYLCHOLINE
     Indication: Endotracheal intubation
  2. ETOMIDATE [Suspect]
     Active Substance: ETOMIDATE

REACTIONS (2)
  - Body temperature increased [None]
  - Hyperthermia malignant [None]

NARRATIVE: CASE EVENT DATE: 20230608
